FAERS Safety Report 7001801-6 (Version None)
Quarter: 2010Q3

REPORT INFORMATION
  Report Type: 
  Country: None (occurrence: None)
  Receive Date: 20100920
  Receipt Date: 20070517
  Transmission Date: 20110219
  Serious: Yes (Hospitalization, Other)
  Sender: FDA-Public Use
  Company Number: US-ASTRAZENECA-2006UW22788

PATIENT
  Age: 15383 Day
  Sex: Male

DRUGS (15)
  1. SEROQUEL [Suspect]
     Indication: SCHIZOPHRENIA
     Dosage: 100 MG - 600 MG
     Route: 048
     Dates: start: 20010820
  2. SEROQUEL [Suspect]
     Indication: BIPOLAR DISORDER
     Dosage: 100 MG - 600 MG
     Route: 048
     Dates: start: 20010820
  3. SEROQUEL [Suspect]
     Indication: DEPRESSION
     Dosage: 100 MG - 600 MG
     Route: 048
     Dates: start: 20010820
  4. SEROQUEL [Suspect]
     Indication: PARANOIA
     Dosage: 100 MG - 600 MG
     Route: 048
     Dates: start: 20010820
  5. HALDOL [Concomitant]
     Indication: ANXIETY
     Dosage: 5 MG - 100 MG
     Dates: start: 20021125
  6. HALDOL [Concomitant]
     Indication: AGITATION
     Dosage: 5 MG - 100 MG
     Dates: start: 20021125
  7. NAVANE [Concomitant]
  8. COLACE [Concomitant]
     Dosage: 100 MG - 600 MG
     Route: 048
     Dates: start: 20011130
  9. SYNTHROID [Concomitant]
     Dates: start: 20020123
  10. ZANTAC [Concomitant]
     Dosage: 150 MG - 300 MG
     Dates: start: 20020123
  11. ATENOLOL [Concomitant]
     Dosage: 1 MG - 100 MG
     Dates: start: 20020123
  12. LOPID [Concomitant]
     Dates: start: 20020123
  13. LASIX [Concomitant]
     Dosage: 20 MG - 120 MG
     Dates: start: 20020108
  14. VASOTEC [Concomitant]
     Dosage: 20 MG - 50 MG
     Route: 048
     Dates: start: 20050114
  15. COGENTIN [Concomitant]
     Dosage: 1 MG - 600 MG
     Dates: start: 19920916

REACTIONS (6)
  - BLOOD GLUCOSE INCREASED [None]
  - DIABETES MELLITUS [None]
  - DIABETES MELLITUS INADEQUATE CONTROL [None]
  - HYPERGLYCAEMIA [None]
  - TYPE 1 DIABETES MELLITUS [None]
  - TYPE 2 DIABETES MELLITUS [None]
